FAERS Safety Report 24437003 (Version 2)
Quarter: 2025Q2

REPORT INFORMATION
  Report Type: Spontaneous
  Country: NL (occurrence: NL)
  Receive Date: 20241015
  Receipt Date: 20250520
  Transmission Date: 20250716
  Serious: Yes (Other)
  Sender: ASCEND THERAPEUTICS US, LLC
  Company Number: NL-Ascend Therapeutics US, LLC-2163026

PATIENT
  Age: 75 Year
  Sex: Male

DRUGS (3)
  1. ANDROGEL [Suspect]
     Active Substance: TESTOSTERONE
     Indication: Primary hypogonadism
     Dates: start: 20200914
  2. ANDROGEL [Suspect]
     Active Substance: TESTOSTERONE
     Indication: Testicular failure
  3. ANDROGEL [Suspect]
     Active Substance: TESTOSTERONE
     Dates: start: 20200914

REACTIONS (2)
  - Malignant melanoma [Unknown]
  - Application site irritation [Unknown]

NARRATIVE: CASE EVENT DATE: 20230101
